FAERS Safety Report 6743532-3 (Version None)
Quarter: 2010Q2

REPORT INFORMATION
  Report Type: 
  Country: None (occurrence: None)
  Receive Date: 20100527
  Receipt Date: 20100506
  Transmission Date: 20101027
  Serious: Yes (Other)
  Sender: FDA-Public Use
  Company Number: PHEH2010US03462

PATIENT
  Sex: Female

DRUGS (1)
  1. AREDIA [Suspect]
     Dosage: 90 MG, UNK
     Route: 042
     Dates: start: 20011001, end: 20020326

REACTIONS (9)
  - ABDOMINAL PAIN UPPER [None]
  - BRONCHITIS [None]
  - CHILLS [None]
  - DECREASED APPETITE [None]
  - DEPRESSION [None]
  - FATIGUE [None]
  - GLOSSODYNIA [None]
  - HYPERHIDROSIS [None]
  - PYREXIA [None]
